FAERS Safety Report 19774362 (Version 2)
Quarter: 2021Q3

REPORT INFORMATION
  Report Type: Report from Study
  Country: AU (occurrence: AU)
  Receive Date: 20210901
  Receipt Date: 20210922
  Transmission Date: 20211014
  Serious: Yes (Other)
  Sender: FDA-Public Use
  Company Number: AU-BIOGEN-2020BI00904692

PATIENT
  Age: 24 Year
  Sex: Male

DRUGS (12)
  1. TECFIDERA [Suspect]
     Active Substance: DIMETHYL FUMARATE
     Route: 048
  2. OMEPRAZOLE. [Concomitant]
     Active Substance: OMEPRAZOLE
     Indication: PRODUCT USED FOR UNKNOWN INDICATION
     Route: 065
  3. TECFIDERA [Suspect]
     Active Substance: DIMETHYL FUMARATE
     Dosage: MAINTENANCE DOSE
     Route: 048
     Dates: start: 20200727
  4. TECFIDERA [Suspect]
     Active Substance: DIMETHYL FUMARATE
     Route: 048
     Dates: start: 20200727, end: 20200913
  5. PFIZER VACCINE [Concomitant]
     Indication: COVID-19 PROPHYLAXIS
     Dosage: 1ST DOSE
     Route: 065
  6. TECFIDERA [Suspect]
     Active Substance: DIMETHYL FUMARATE
     Dosage: 240MG MANE AND 120MG NOCTE
     Route: 048
     Dates: start: 20200831
  7. DUROMINE [Concomitant]
     Active Substance: PHENTERMINE
     Indication: WEIGHT CONTROL
     Route: 065
  8. PFIZER VACCINE [Concomitant]
     Dosage: 2ND DOSE
     Route: 065
     Dates: start: 202109, end: 202109
  9. FLU VACCINE [Concomitant]
     Active Substance: INFLUENZA VIRUS VACCINE
     Indication: PRODUCT USED FOR UNKNOWN INDICATION
     Route: 065
  10. TECFIDERA [Suspect]
     Active Substance: DIMETHYL FUMARATE
     Route: 048
     Dates: start: 20200914
  11. TECFIDERA [Suspect]
     Active Substance: DIMETHYL FUMARATE
     Indication: MULTIPLE SCLEROSIS
     Route: 048
     Dates: start: 20200727, end: 20200809
  12. TECFIDERA [Suspect]
     Active Substance: DIMETHYL FUMARATE
     Route: 048
     Dates: start: 20200810

REACTIONS (11)
  - Hot flush [Recovered/Resolved]
  - Constipation [Not Recovered/Not Resolved]
  - Product dose omission issue [Recovered/Resolved]
  - Abdominal discomfort [Not Recovered/Not Resolved]
  - Crohn^s disease [Not Recovered/Not Resolved]
  - Flushing [Recovered/Resolved]
  - Underdose [Recovered/Resolved]
  - Musculoskeletal stiffness [Recovered/Resolved]
  - Poor quality sleep [Recovered/Resolved]
  - Dry skin [Not Recovered/Not Resolved]
  - Pruritus [Recovered/Resolved]

NARRATIVE: CASE EVENT DATE: 20200914
